FAERS Safety Report 13149156 (Version 2)
Quarter: 2017Q1

REPORT INFORMATION
  Report Type: Spontaneous
  Country: DE (occurrence: DE)
  Receive Date: 20170125
  Receipt Date: 20170227
  Transmission Date: 20170428
  Serious: Yes (Other)
  Sender: FDA-Public Use
  Company Number: DE-BIOFRONTERA-000348

PATIENT
  Age: 79 Year
  Sex: Male

DRUGS (3)
  1. AMELUZ [Suspect]
     Active Substance: AMINOLEVULINIC ACID HYDROCHLORIDE
     Indication: ACTINIC KERATOSIS
     Dosage: 78 MG / GRAM GEL
     Route: 061
     Dates: start: 20170109, end: 20170109
  2. NOVAMINSULFON [Concomitant]
     Active Substance: METAMIZOLE
  3. IBUPROFEN. [Concomitant]
     Active Substance: IBUPROFEN
     Route: 048

REACTIONS (1)
  - Transient global amnesia [Recovered/Resolved]

NARRATIVE: CASE EVENT DATE: 20170110
